FAERS Safety Report 24591743 (Version 1)
Quarter: 2024Q4

REPORT INFORMATION
  Report Type: Spontaneous
  Country: IL (occurrence: IL)
  Receive Date: 20241108
  Receipt Date: 20241108
  Transmission Date: 20250115
  Serious: Yes (Hospitalization)
  Sender: ABBVIE
  Company Number: IL-ABBVIE-5991215

PATIENT
  Age: 66 Year
  Sex: Female

DRUGS (1)
  1. RINVOQ [Suspect]
     Active Substance: UPADACITINIB
     Indication: Product used for unknown indication
     Dosage: FORM STRENGTH: 15 MILLIGRAM
     Route: 048
     Dates: start: 20201201

REACTIONS (4)
  - Vaginal discharge [Unknown]
  - Vulvovaginal burning sensation [Unknown]
  - Vulvovaginal rash [Unknown]
  - Vulvovaginal pruritus [Unknown]
